FAERS Safety Report 6122482-X (Version None)
Quarter: 2009Q1

REPORT INFORMATION
  Report Type: 
  Country: None (occurrence: None)
  Receive Date: 20090318
  Receipt Date: 20081203
  Transmission Date: 20090719
  Serious: No
  Sender: FDA-Public Use
  Company Number: US-ASTRAZENECA-2008UW26980

PATIENT
  Sex: Female

DRUGS (4)
  1. SYMBICORT [Suspect]
     Indication: ASTHMA
     Route: 055
  2. SYMBICORT [Suspect]
     Indication: EMPHYSEMA
     Route: 055
  3. SYMBICORT [Suspect]
     Indication: BRONCHITIS
     Route: 055
  4. ADVAIR HFA [Concomitant]

REACTIONS (2)
  - ARTHRITIS [None]
  - CANDIDIASIS [None]
